FAERS Safety Report 6141047-7 (Version None)
Quarter: 2009Q2

REPORT INFORMATION
  Report Type: 
  Country: None (occurrence: None)
  Receive Date: 20090402
  Receipt Date: 20090325
  Transmission Date: 20091009
  Serious: Yes (Hospitalization, Other)
  Sender: FDA-Public Use
  Company Number: US-CELGENEUS-163-21880-09011486

PATIENT
  Sex: Female
  Weight: 64.014 kg

DRUGS (19)
  1. REVLIMID [Suspect]
     Indication: MULTIPLE MYELOMA
     Route: 048
     Dates: start: 20081124, end: 20081214
  2. REVLIMID [Suspect]
     Route: 048
     Dates: start: 20081223, end: 20090105
  3. REVLIMID [Suspect]
     Route: 048
     Dates: start: 20090122, end: 20090206
  4. DEXAMETHASONE [Suspect]
     Indication: MULTIPLE MYELOMA
     Route: 048
     Dates: start: 20081124, end: 20081215
  5. DEXAMETHASONE [Suspect]
     Route: 048
     Dates: start: 20081223, end: 20090105
  6. DEXAMETHASONE [Suspect]
     Route: 048
     Dates: start: 20090122, end: 20090206
  7. VORINOSTAT [Suspect]
     Indication: MULTIPLE MYELOMA
     Route: 048
     Dates: start: 20081223, end: 20090105
  8. VORINOSTAT [Suspect]
     Route: 048
     Dates: start: 20081124, end: 20081214
  9. VORINOSTAT [Suspect]
     Route: 048
     Dates: start: 20090122, end: 20090206
  10. AMBIEN [Concomitant]
     Indication: DRUG USE FOR UNKNOWN INDICATION
     Route: 065
     Dates: start: 20081111
  11. LEVAQUIN [Concomitant]
     Indication: DRUG USE FOR UNKNOWN INDICATION
     Route: 065
     Dates: start: 20090106, end: 20090116
  12. ZOLOFT [Concomitant]
     Indication: DRUG USE FOR UNKNOWN INDICATION
     Route: 048
     Dates: start: 20081126
  13. ZOMETA [Concomitant]
     Indication: DRUG USE FOR UNKNOWN INDICATION
     Route: 065
     Dates: start: 20080425
  14. AMOXICILLIN [Concomitant]
     Indication: DRUG USE FOR UNKNOWN INDICATION
     Route: 065
     Dates: start: 20080710
  15. FOLIC ACID [Concomitant]
     Indication: DRUG USE FOR UNKNOWN INDICATION
     Route: 065
     Dates: start: 20080522
  16. MULTI-VITAMINS [Concomitant]
     Indication: DRUG USE FOR UNKNOWN INDICATION
     Route: 065
     Dates: start: 20080522
  17. WARFARIN SODIUM [Concomitant]
     Indication: DRUG USE FOR UNKNOWN INDICATION
     Route: 048
     Dates: start: 20090108
  18. NEUPOGEN [Concomitant]
     Indication: NEUTROPENIA
     Route: 058
     Dates: start: 20090106
  19. ZITHROMAX [Concomitant]
     Indication: DRUG USE FOR UNKNOWN INDICATION
     Route: 065
     Dates: start: 20081216, end: 20081226

REACTIONS (3)
  - NEUTROPENIA [None]
  - PATHOLOGICAL FRACTURE [None]
  - STERNAL FRACTURE [None]
